FAERS Safety Report 19006807 (Version 1)
Quarter: 2021Q1

REPORT INFORMATION
  Report Type: Spontaneous
  Country: US (occurrence: US)
  Receive Date: 20210312
  Receipt Date: 20210312
  Transmission Date: 20210420
  Serious: Yes (Life-Threatening, Hospitalization)
  Sender: FDA-Public Use
  Company Number: None

PATIENT
  Age: 54 Year
  Sex: Male
  Weight: 64.6 kg

DRUGS (1)
  1. CEFTRIAXONE. [Suspect]
     Active Substance: CEFTRIAXONE
     Indication: MENINGITIS
     Route: 042
     Dates: start: 20210211, end: 20210211

REACTIONS (4)
  - Hypotension [None]
  - Mental status changes [None]
  - Anaphylactic reaction [None]
  - Tachycardia [None]

NARRATIVE: CASE EVENT DATE: 20210211
